FAERS Safety Report 5366145-7 (Version None)
Quarter: 2007Q2

REPORT INFORMATION
  Report Type: 
  Country: None (occurrence: None)
  Receive Date: 20070530
  Receipt Date: 20070309
  Transmission Date: 20071010
  Serious: No
  Sender: FDA-Public Use
  Company Number: 2005PV003557

PATIENT
  Age: 71 Year
  Sex: Female
  Weight: 124.7392 kg

DRUGS (16)
  1. BYETTA [Suspect]
     Indication: DIABETES MELLITUS NON-INSULIN-DEPENDENT
     Dosage: 5 MCG;BID;SC   10 MCG;SC
     Route: 058
     Dates: start: 20051022
  2. BYETTA [Suspect]
  3. DIOVAN [Concomitant]
  4. ATENOLOL [Concomitant]
  5. ACTOS [Concomitant]
  6. AMARYL [Concomitant]
  7. METFORMIN HCL [Concomitant]
  8. LASIX [Concomitant]
  9. POTASSIUM CHLORIDE [Concomitant]
  10. ECOTRIN [Concomitant]
  11. FERROUS SULFATE [Concomitant]
  12. FOSAMAX [Concomitant]
  13. OSCAL D [Concomitant]
  14. FOLIC ACID [Concomitant]
  15. CENTRUM SILVER [Concomitant]
  16. METAMUCIL [Concomitant]

REACTIONS (7)
  - APPETITE DISORDER [None]
  - CONFUSIONAL STATE [None]
  - DECREASED APPETITE [None]
  - HEADACHE [None]
  - PRURITUS [None]
  - RASH [None]
  - WEIGHT DECREASED [None]
